FAERS Safety Report 4654761-7 (Version None)
Quarter: 2005Q2

REPORT INFORMATION
  Report Type: 
  Country: None (occurrence: None)
  Receive Date: 20050506
  Receipt Date: 20031023
  Transmission Date: 20051028
  Serious: Yes (Death, Hospitalization)
  Sender: FDA-Public Use
  Company Number: IL-ROCHE-350160

PATIENT
  Age: 53 Year
  Sex: Male
  Weight: 51.5 kg

DRUGS (19)
  1. DACLIZUMAB [Suspect]
     Route: 042
     Dates: start: 20030917, end: 20030917
  2. DACLIZUMAB [Suspect]
     Route: 042
     Dates: end: 20031113
  3. MYCOPHENOLATE MOFETIL [Suspect]
     Route: 048
     Dates: start: 20030918, end: 20040822
  4. TACROLIMUS [Suspect]
     Route: 048
     Dates: start: 20030918
  5. TACROLIMUS [Suspect]
     Route: 048
     Dates: start: 20031009, end: 20040822
  6. PREDNISONE TAB [Suspect]
     Route: 048
     Dates: start: 20030919
  7. PREDNISONE TAB [Suspect]
     Route: 048
     Dates: start: 20031124, end: 20040822
  8. CILAZAPRIL [Concomitant]
     Route: 048
     Dates: start: 20030918
  9. RESPRIM [Concomitant]
     Route: 048
     Dates: start: 20030918
  10. ATENOLOL [Concomitant]
     Route: 048
     Dates: start: 20030922
  11. NITRATE [Concomitant]
     Dosage: THERAPY STATED AS 'AS NEEDED'
     Dates: start: 20030918
  12. COTRIM [Concomitant]
     Route: 048
     Dates: start: 20031117
  13. INSULIN [Concomitant]
     Route: 058
     Dates: start: 20031013
  14. CARVEDILOL [Concomitant]
     Route: 048
     Dates: start: 20030927
  15. OMEPRAZOLE [Concomitant]
  16. CIPROFLOXACIN [Concomitant]
  17. ASPIRIN [Concomitant]
  18. INSULATARD [Concomitant]
  19. ACTRAPID [Concomitant]

REACTIONS (15)
  - ANAEMIA [None]
  - BACTERIAL INFECTION [None]
  - BLOOD CREATININE INCREASED [None]
  - BRADYCARDIA [None]
  - DEHYDRATION [None]
  - HYPERGLYCAEMIA [None]
  - NEPHROPATHY [None]
  - OLIGURIA [None]
  - PNEUMONIA [None]
  - RENAL TUBULAR NECROSIS [None]
  - SEPSIS [None]
  - SEPTIC SHOCK [None]
  - TRANSPLANT REJECTION [None]
  - VENTRICULAR FIBRILLATION [None]
  - VENTRICULAR TACHYCARDIA [None]
